FAERS Safety Report 8231721-0 (Version None)
Quarter: 2012Q1

REPORT INFORMATION
  Report Type: 
  Country: None (occurrence: None)
  Receive Date: 20120320
  Receipt Date: 20120309
  Transmission Date: 20120608
  Serious: Yes (Other)
  Sender: FDA-Public Use
  Company Number: PD 157

PATIENT
  Age: 28 Year
  Sex: Female

DRUGS (1)
  1. LEVETIRACETAM [Suspect]
     Indication: CONVULSION
     Dosage: 500 - 3000 MG/DAY

REACTIONS (11)
  - AGGRESSION [None]
  - LETHARGY [None]
  - DIZZINESS [None]
  - ATAXIA [None]
  - DEPRESSION [None]
  - CONVULSION [None]
  - IRRITABILITY [None]
  - NAUSEA [None]
  - VOMITING [None]
  - MOOD SWINGS [None]
  - SEDATION [None]
